FAERS Safety Report 22221761 (Version 1)
Quarter: 2023Q2

REPORT INFORMATION
  Report Type: Other
  Country: DE (occurrence: DE)
  Receive Date: 20230418
  Receipt Date: 20230418
  Transmission Date: 20230722
  Serious: Yes (Death, Other)
  Sender: FDA-Public Use
  Company Number: DE-drreddys-LIT/GER/23/0163545

PATIENT
  Sex: Male

DRUGS (3)
  1. BEVACIZUMAB [Suspect]
     Active Substance: BEVACIZUMAB
     Indication: Meningioma
     Dosage: AT THE AGE OF 40, 10 THERAPIES
     Route: 065
  2. EVEROLIMUS [Suspect]
     Active Substance: EVEROLIMUS
     Indication: Meningioma
     Dosage: AT THE AGE OF 40, 10 THERAPIES
     Route: 065
  3. EVEROLIMUS [Suspect]
     Active Substance: EVEROLIMUS
     Dosage: AT THE AGE OF 40, 9 THERAPIES
     Route: 065

REACTIONS (4)
  - Product use in unapproved indication [Unknown]
  - Death [Fatal]
  - Meningioma [Unknown]
  - Neoplasm progression [Unknown]
